FAERS Safety Report 24378394 (Version 2)
Quarter: 2024Q4

REPORT INFORMATION
  Report Type: Spontaneous
  Country: FR (occurrence: FR)
  Receive Date: 20240930
  Receipt Date: 20241105
  Transmission Date: 20250115
  Serious: Yes (Hospitalization, Other)
  Sender: FRESENIUS KABI
  Company Number: None

PATIENT
  Age: 71 Year
  Sex: Female

DRUGS (5)
  1. LIDOCAINE [Suspect]
     Active Substance: LIDOCAINE
     Indication: Joint injection
     Dosage: 5 MILLILITRE?FORM OF ADMIN: SOLUTION FOR INJECTION
     Route: 042
     Dates: start: 20230303, end: 20230303
  2. VISIPAQUE [Suspect]
     Active Substance: IODIXANOL
     Indication: Joint injection
     Dosage: 3 MILLILITRE, (270 MG I/ML STRENGTH)?FOA: UNKNOWN
     Route: 042
     Dates: start: 20230303, end: 20230303
  3. DEXAMETHASONE [Suspect]
     Active Substance: DEXAMETHASONE
     Indication: Joint injection
     Dosage: 2 MILLILITRE?FOA: UNKNOWN
     Route: 042
     Dates: start: 20230303, end: 20230303
  4. ALBUTEROL [Concomitant]
     Active Substance: ALBUTEROL
     Indication: Product used for unknown indication
     Dosage: UNK?FOA: UNKNOWN
     Route: 065
  5. EBASTINE [Concomitant]
     Active Substance: EBASTINE
     Indication: Product used for unknown indication
     Dosage: UNK?FOA: UNKNOWN
     Route: 065

REACTIONS (1)
  - Anaphylactic reaction [Recovered/Resolved]

NARRATIVE: CASE EVENT DATE: 20230303
